FAERS Safety Report 11915500 (Version 1)
Quarter: 2016Q1

REPORT INFORMATION
  Report Type: Spontaneous
  Country: US (occurrence: US)
  Receive Date: 20160114
  Receipt Date: 20160114
  Transmission Date: 20160526
  Serious: Yes (Hospitalization)
  Sender: FDA-Public Use
  Company Number: US-ROCHE-1636960

PATIENT
  Age: 63 Year
  Sex: Female

DRUGS (16)
  1. VITAMIN C [Concomitant]
     Active Substance: ASCORBIC ACID
  2. VITAMIN K [Concomitant]
     Active Substance: PHYTONADIONE
  3. TRANSDERM SCOP [Concomitant]
     Active Substance: SCOPOLAMINE
  4. GABAPENTIN. [Concomitant]
     Active Substance: GABAPENTIN
  5. GLUTATHIONE [Concomitant]
     Active Substance: GLUTATHIONE
  6. LORATADINE. [Concomitant]
     Active Substance: LORATADINE
  7. GLUTAMINE [Concomitant]
     Active Substance: GLUTAMINE
  8. AVASTIN [Suspect]
     Active Substance: BEVACIZUMAB
     Indication: GALLBLADDER CANCER
     Route: 065
  9. COD LIVER OIL [Concomitant]
     Active Substance: COD LIVER OIL
  10. TYLENOL [Concomitant]
     Active Substance: ACETAMINOPHEN
  11. TARCEVA [Suspect]
     Active Substance: ERLOTINIB HYDROCHLORIDE
     Indication: GALLBLADDER CANCER
     Dosage: ON EMPTY STOMACH; 1 HOUR BEFORE OR 2 HOUR AFTER FOOD
     Route: 048
  12. AMBIEN [Concomitant]
     Active Substance: ZOLPIDEM TARTRATE
  13. FOLIC ACID. [Concomitant]
     Active Substance: FOLIC ACID
  14. ZOFRAN [Concomitant]
     Active Substance: ONDANSETRON HYDROCHLORIDE
  15. MILK THISTLE [Concomitant]
     Active Substance: MILK THISTLE
  16. PROMETHAZINE HCL [Concomitant]
     Active Substance: PROMETHAZINE HYDROCHLORIDE

REACTIONS (2)
  - Myelodysplastic syndrome [Unknown]
  - Platelet count decreased [Unknown]

NARRATIVE: CASE EVENT DATE: 20160105
